FAERS Safety Report 4333088-7 (Version None)
Quarter: 2004Q1

REPORT INFORMATION
  Report Type: 
  Country: None (occurrence: None)
  Receive Date: 20040330
  Receipt Date: 20040322
  Transmission Date: 20041129
  Serious: Yes (Hospitalization)
  Sender: FDA-Public Use
  Company Number: MK200403-0195-1

PATIENT
  Sex: Female

DRUGS (1)
  1. ANAFRANIL CAP [Suspect]
     Dosage: TRANSPLANCENTAL
     Route: 064
     Dates: end: 20031215

REACTIONS (8)
  - CEREBRAL HAEMATOMA [None]
  - CEREBRAL HAEMORRHAGE NEONATAL [None]
  - CEREBRAL ISCHAEMIA [None]
  - CONVULSION [None]
  - CONVULSION NEONATAL [None]
  - FORCEPS DELIVERY [None]
  - MATERNAL DRUGS AFFECTING FOETUS [None]
  - NEONATAL DISORDER [None]
